FAERS Safety Report 20004632 (Version 1)
Quarter: 2021Q4

REPORT INFORMATION
  Report Type: Report from Study
  Country: US (occurrence: US)
  Receive Date: 20211027
  Receipt Date: 20211027
  Transmission Date: 20220304
  Serious: Yes (Hospitalization)
  Sender: FDA-Public Use
  Company Number: US-TAKEDA-2021TUS066436

PATIENT
  Weight: 84.9 kg

DRUGS (17)
  1. HUMAN IMMUNOGLOBULIN G [Suspect]
     Active Substance: HUMAN IMMUNOGLOBULIN G
     Indication: Immunodeficiency common variable
     Dosage: 30 GRAM, Q2WEEKS
     Route: 042
     Dates: start: 20210624
  2. TACROLIMUS [Concomitant]
     Active Substance: TACROLIMUS
  3. FLOMAX [Concomitant]
     Active Substance: TAMSULOSIN HYDROCHLORIDE
  4. LIPITOR [Concomitant]
     Active Substance: ATORVASTATIN CALCIUM
  5. FAMCICLOVIR [Concomitant]
     Active Substance: FAMCICLOVIR
  6. AVODART [Concomitant]
     Active Substance: DUTASTERIDE
  7. SENNA-S [Concomitant]
     Active Substance: DOCUSATE SODIUM\SENNOSIDES
  8. Ursodiolisin [Concomitant]
  9. FLUCONAZOLE [Concomitant]
     Active Substance: FLUCONAZOLE
  10. ALLOPURINOL [Concomitant]
     Active Substance: ALLOPURINOL
  11. MIRALAX [Concomitant]
     Active Substance: POLYETHYLENE GLYCOL 3350
  12. FIBER [Concomitant]
     Active Substance: PSYLLIUM HUSK
  13. VITAMINS [Concomitant]
     Active Substance: VITAMINS
  14. PREDNISONE [Concomitant]
     Active Substance: PREDNISONE
  15. MagOx [Concomitant]
  16. COLACE [Concomitant]
     Active Substance: DOCUSATE SODIUM
  17. MELATONIN [Concomitant]
     Active Substance: MELATONIN

REACTIONS (1)
  - Hospitalisation [Unknown]
